FAERS Safety Report 24830478 (Version 3)
Quarter: 2025Q2

REPORT INFORMATION
  Report Type: Spontaneous
  Country: US (occurrence: US)
  Receive Date: 20250110
  Receipt Date: 20250602
  Transmission Date: 20250716
  Serious: No
  Sender: PFIZER
  Company Number: US-PFIZER INC-PV202500002427

PATIENT
  Age: 58 Year
  Sex: Female

DRUGS (1)
  1. IBRANCE [Suspect]
     Active Substance: PALBOCICLIB
     Dosage: UNK, 1X/DAY BEFORE BREAKFAST

REACTIONS (9)
  - Fatigue [Not Recovered/Not Resolved]
  - Decreased appetite [Unknown]
  - White blood cell count decreased [Unknown]
  - Red blood cell count decreased [Unknown]
  - Platelet count decreased [Unknown]
  - Asthenia [Unknown]
  - Alopecia [Unknown]
  - Nausea [Unknown]
  - Insomnia [Unknown]
